FAERS Safety Report 8031173-X (Version None)
Quarter: 2012Q1

REPORT INFORMATION
  Report Type: 
  Country: None (occurrence: None)
  Receive Date: 20120109
  Receipt Date: 20120103
  Transmission Date: 20120608
  Serious: Yes (Hospitalization)
  Sender: FDA-Public Use
  Company Number: US-ACTELION-A-US2011-57963

PATIENT

DRUGS (3)
  1. COUMADIN [Concomitant]
  2. TRACLEER [Suspect]
     Indication: PULMONARY ARTERIAL HYPERTENSION
     Dosage: UNK
     Route: 048
     Dates: start: 20100402
  3. CALCIUM CHANNEL BLOCKERS [Concomitant]

REACTIONS (3)
  - RENAL FAILURE [None]
  - PULMONARY ARTERIAL HYPERTENSION [None]
  - OEDEMA PERIPHERAL [None]
